FAERS Safety Report 8826091 (Version 1)
Quarter: 2012Q4

REPORT INFORMATION
  Report Type: 
  Country: US (occurrence: US)
  Receive Date: 20121005
  Receipt Date: 20121005
  Transmission Date: 20130627
  Serious: Yes (Hospitalization)
  Sender: FDA-Public Use
  Company Number: US-ABBOTT-12P-163-0988589-00

PATIENT
  Age: 36 None
  Sex: Male

DRUGS (3)
  1. HUMIRA [Suspect]
     Dates: start: 201109, end: 201202
  2. HUMIRA [Suspect]
     Dates: start: 201209, end: 201209
  3. IMURAN [Concomitant]
     Indication: CROHN^S DISEASE
     Dates: start: 2012

REACTIONS (9)
  - Fistula [Not Recovered/Not Resolved]
  - Abscess [Not Recovered/Not Resolved]
  - Gastrointestinal disorder [Recovered/Resolved]
  - Sepsis [Recovered/Resolved]
  - Pain [Not Recovered/Not Resolved]
  - Procedural pain [Not Recovered/Not Resolved]
  - Pain in extremity [Not Recovered/Not Resolved]
  - Arthralgia [Not Recovered/Not Resolved]
  - Pain in extremity [Not Recovered/Not Resolved]
